FAERS Safety Report 19413838 (Version 5)
Quarter: 2022Q1

REPORT INFORMATION
  Report Type: Other
  Country: US (occurrence: None)
  Receive Date: 20210615
  Receipt Date: 20220324
  Transmission Date: 20220423
  Serious: Yes (Other)
  Sender: FDA-Public Use
  Company Number: US-ROCHE-2296073

PATIENT
  Sex: Female

DRUGS (3)
  1. PULMOZYME [Suspect]
     Active Substance: DORNASE ALFA
     Indication: Spinal muscular atrophy
     Dosage: INHALE 2.5 ML VIA NEBULIZER TWO TIMES DAILY. INHALE 1 MG/ML SOLUTION TWICE DAILY
     Route: 065
  2. PULMOZYME [Suspect]
     Active Substance: DORNASE ALFA
     Indication: Neuromuscular scoliosis
  3. PULMOZYME [Suspect]
     Active Substance: DORNASE ALFA
     Indication: Neuromuscular scoliosis

REACTIONS (2)
  - Upper limb fracture [Unknown]
  - Off label use [Unknown]
